FAERS Safety Report 8912734 (Version 1)
Quarter: 2012Q4

REPORT INFORMATION
  Report Type: 
  Country: CA (occurrence: CA)
  Receive Date: 20121116
  Receipt Date: 20121116
  Transmission Date: 20130627
  Serious: Yes (Disabling)
  Sender: FDA-Public Use
  Company Number: CA-ASTRAZENECA-2012SE84857

PATIENT
  Sex: Female
  Weight: 58.1 kg

DRUGS (5)
  1. ATACAND [Suspect]
     Route: 048
  2. ASPIRIN [Concomitant]
  3. BROMAZEPAM [Concomitant]
  4. PRAVASTATIN SODIUM [Concomitant]
  5. SERTRALINE [Concomitant]

REACTIONS (5)
  - Anxiety [Recovered/Resolved]
  - Dyspnoea [Recovered/Resolved]
  - Heart rate decreased [Recovered/Resolved]
  - Palpitations [Recovered/Resolved]
  - Restlessness [Recovered/Resolved]
